FAERS Safety Report 6189993-2 (Version None)
Quarter: 2009Q2

REPORT INFORMATION
  Report Type: 
  Country: None (occurrence: None)
  Receive Date: 20090512
  Receipt Date: 20090512
  Transmission Date: 20091009
  Serious: Yes (Hospitalization)
  Sender: FDA-Public Use
  Company Number: None

PATIENT
  Sex: Male

DRUGS (4)
  1. TECHNETIUM TC 99M SESTAMIBI [Suspect]
     Indication: CARDIAC PHARMACOLOGIC STRESS TEST
     Dosage: 2 INJECTIONS 40 MCI IV
     Route: 042
     Dates: start: 20081128, end: 20081128
  2. VITAMIN B1 TAB [Concomitant]
  3. VITAMIN B6 [Concomitant]
  4. ACETYLCYSTEINE [Concomitant]

REACTIONS (5)
  - HYPOAESTHESIA [None]
  - HYPOAESTHESIA ORAL [None]
  - SENSORY DISTURBANCE [None]
  - SKIN BURNING SENSATION [None]
  - TREMOR [None]
